FAERS Safety Report 6641054-1 (Version None)
Quarter: 2010Q1

REPORT INFORMATION
  Report Type: 
  Country: None (occurrence: None)
  Receive Date: 20100318
  Receipt Date: 20090414
  Transmission Date: 20100710
  Serious: No
  Sender: FDA-Public Use
  Company Number: US-ASTRAZENECA-2009UW09353

PATIENT
  Age: 78 Year
  Sex: Male
  Weight: 70.3 kg

DRUGS (2)
  1. ZESTRIL [Suspect]
     Route: 048
     Dates: start: 19840101, end: 19960101
  2. ANTIFUNGAL [Concomitant]

REACTIONS (4)
  - ASTHMA [None]
  - NAUSEA [None]
  - RESPIRATORY RATE INCREASED [None]
  - WHEEZING [None]
